FAERS Safety Report 15301176 (Version 3)
Quarter: 2018Q4

REPORT INFORMATION
  Report Type: Report from Study
  Country: NL (occurrence: NL)
  Receive Date: 20180821
  Receipt Date: 20181122
  Transmission Date: 20190204
  Serious: Yes (Death, Life-Threatening, Hospitalization, Other)
  Sender: FDA-Public Use
  Company Number: NL-ASPEN-GLO2018NL008095

PATIENT
  Sex: Female

DRUGS (8)
  1. METHOTREXATE. [Suspect]
     Active Substance: METHOTREXATE
     Indication: ACUTE LYMPHOCYTIC LEUKAEMIA
     Dosage: 12.5 MG, QD
     Route: 037
     Dates: start: 20180629, end: 20180706
  2. OMEPRAZOLE. [Concomitant]
     Active Substance: OMEPRAZOLE
     Indication: PRODUCT USED FOR UNKNOWN INDICATION
     Route: 065
  3. PREDNISOLONE. [Suspect]
     Active Substance: PREDNISOLONE
     Indication: ACUTE LYMPHOCYTIC LEUKAEMIA
     Dosage: 70 MG, QD
     Route: 048
     Dates: start: 20180605, end: 20180712
  4. VINCRISTINE [Suspect]
     Active Substance: VINCRISTINE
     Indication: ACUTE LYMPHOCYTIC LEUKAEMIA
     Dosage: 1.8 MG, 1X/DAY:QD
     Route: 065
     Dates: start: 20180621, end: 20180705
  5. DEXAMETHASONE. [Suspect]
     Active Substance: DEXAMETHASONE
     Indication: ACUTE LYMPHOCYTIC LEUKAEMIA
     Dosage: 4 MG, QD,TOTAL
     Route: 037
     Dates: start: 20180629, end: 20180706
  6. DAUNORUBICIN [Suspect]
     Active Substance: DAUNORUBICIN
     Indication: ACUTE LYMPHOCYTIC LEUKAEMIA
     Dosage: 55 MG, QD
     Route: 065
     Dates: start: 20180628, end: 20180705
  7. BLINATUMOMAB [Suspect]
     Active Substance: BLINATUMOMAB
     Indication: ACUTE LYMPHOCYTIC LEUKAEMIA
     Dosage: 0.028 MG, QD
     Route: 065
     Dates: start: 20180605, end: 20180618
  8. ONCASPAR [Suspect]
     Active Substance: PEGASPARGASE
     Indication: ACUTE LYMPHOCYTIC LEUKAEMIA
     Dosage: 1350 IU, QD
     Route: 065
     Dates: start: 20180628, end: 20180628

REACTIONS (3)
  - Infection [Fatal]
  - Product use issue [Unknown]
  - Hepatic failure [Fatal]

NARRATIVE: CASE EVENT DATE: 20180629
